FAERS Safety Report 4584410-8 (Version None)
Quarter: 2005Q1

REPORT INFORMATION
  Report Type: 
  Country: None (occurrence: None)
  Receive Date: 20050125
  Receipt Date: 20041111
  Transmission Date: 20050727
  Serious: No
  Sender: FDA-Public Use
  Company Number: USA041183843

PATIENT
  Age: 62 Year
  Sex: Female
  Weight: 73 kg

DRUGS (17)
  1. FORTEO [Suspect]
     Indication: OSTEOPOROSIS
     Dosage: 20 UG/1 DAY
     Dates: start: 20031101
  2. CELEXA [Concomitant]
  3. CELEBREX [Concomitant]
  4. PROPOXYPHENE HCL [Concomitant]
  5. ALLEGRA (FEXOFENADINE HYDRORCHLORIDE) [Concomitant]
  6. NEXIUM [Concomitant]
  7. PENTA-TRIAMTERENE HCTZ [Concomitant]
  8. PREDNISONE [Concomitant]
  9. AMBIEN [Concomitant]
  10. FUROSEMIDE [Concomitant]
  11. ADVAIR [Concomitant]
  12. FLONASE [Concomitant]
  13. COD-LIVER OIL CAPSULES ^VITAGLOW^ (COD-LIVER OIL) [Concomitant]
  14. NEURONTIN (GABAPENTIN PFIZER) [Concomitant]
  15. CALCIUM W/VITAMIN D NOS [Concomitant]
  16. MULTI-VITAMIN [Concomitant]
  17. POTASSIUM CHLORIDE [Concomitant]

REACTIONS (1)
  - BLOOD ALKALINE PHOSPHATASE INCREASED [None]
